FAERS Safety Report 20723859 (Version 11)
Quarter: 2022Q4

REPORT INFORMATION
  Report Type: Report from Study
  Country: CH (occurrence: None)
  Receive Date: 20220419
  Receipt Date: 20221202
  Transmission Date: 20230113
  Serious: Yes (Hospitalization)
  Sender: FDA-Public Use
  Company Number: CH-Eisai Medical Research-EC-2022-113061

PATIENT
  Age: 59 Year
  Sex: Male
  Weight: 77.3 kg

DRUGS (18)
  1. LENVATINIB [Suspect]
     Active Substance: LENVATINIB
     Indication: Malignant melanoma
     Route: 048
     Dates: start: 20211126, end: 20220407
  2. LENVATINIB [Suspect]
     Active Substance: LENVATINIB
     Route: 048
     Dates: start: 20220427
  3. PEMBROLIZUMAB [Suspect]
     Active Substance: PEMBROLIZUMAB
     Indication: Malignant melanoma
     Dosage: QUAVONLIMAB (MK-1308) 25 MG PLUS PEMBROLIZUMAB (MK-3475) 400 MG
     Route: 042
     Dates: start: 20211126, end: 20220317
  4. QUAVONLIMAB [Suspect]
     Active Substance: QUAVONLIMAB
     Dosage: QUAVONLIMAB (MK-1308) 25 MG PLUS PEMBROLIZUMAB (MK-3475) 400 MG
     Route: 042
     Dates: start: 20220509
  5. OMEGA-3-ACID ETHYL ESTERS [Concomitant]
     Active Substance: OMEGA-3-ACID ETHYL ESTERS
     Dates: start: 2016
  6. OPTIDERM [POLIDOCANOL;UREA] [Concomitant]
     Dates: start: 20220120
  7. XYZAL [Concomitant]
     Active Substance: LEVOCETIRIZINE DIHYDROCHLORIDE
     Dates: start: 20220127
  8. EDARBI [Concomitant]
     Active Substance: AZILSARTAN KAMEDOXOMIL
     Dates: start: 20220303
  9. CLOBETASOL [Concomitant]
     Active Substance: CLOBETASOL
     Route: 061
     Dates: start: 20220317, end: 20220403
  10. PREDNISONE [Concomitant]
     Active Substance: PREDNISONE
     Dates: start: 20220310, end: 20220411
  11. PREDNISONE [Concomitant]
     Active Substance: PREDNISONE
     Dates: start: 20220329, end: 20220404
  12. PREDNISONE [Concomitant]
     Active Substance: PREDNISONE
     Dates: start: 20220405, end: 20220411
  13. EZETIMIBE [Concomitant]
     Active Substance: EZETIMIBE
     Dates: start: 2016
  14. ATORVASTATIN [Concomitant]
     Active Substance: ATORVASTATIN
     Dates: start: 2016
  15. PANTOPRAZOLE [Concomitant]
     Active Substance: PANTOPRAZOLE
     Dates: start: 20211122
  16. DAFALGAN [Concomitant]
     Active Substance: ACETAMINOPHEN
     Dates: start: 20211129
  17. XARELTO [Concomitant]
     Active Substance: RIVAROXABAN
     Dates: start: 20211214
  18. EUTHYROX [Concomitant]
     Active Substance: LEVOTHYROXINE SODIUM
     Dates: start: 20220318, end: 20220620

REACTIONS (1)
  - Colitis [Recovered/Resolved]

NARRATIVE: CASE EVENT DATE: 20220408
